FAERS Safety Report 25353446 (Version 1)
Quarter: 2025Q2

REPORT INFORMATION
  Report Type: Spontaneous
  Country: FR (occurrence: FR)
  Receive Date: 20250523
  Receipt Date: 20250523
  Transmission Date: 20250716
  Serious: Yes (Other)
  Sender: GUERBET
  Company Number: None

PATIENT
  Age: 47 Year
  Sex: Female
  Weight: 56 kg

DRUGS (2)
  1. DOTAREM [Suspect]
     Active Substance: GADOTERATE MEGLUMINE
     Indication: Magnetic resonance imaging
     Route: 042
     Dates: start: 20250305, end: 20250305
  2. LEVOTHYROXINE SODIUM [Concomitant]
     Active Substance: LEVOTHYROXINE SODIUM
     Indication: Hypothyroidism

REACTIONS (5)
  - Sinus tachycardia [Recovering/Resolving]
  - Gastrointestinal disorder [Recovering/Resolving]
  - Vomiting [Recovered/Resolved]
  - Alanine aminotransferase increased [Recovering/Resolving]
  - Pyrexia [Recovered/Resolved]

NARRATIVE: CASE EVENT DATE: 20250305
